FAERS Safety Report 7326679-2 (Version None)
Quarter: 2011Q1

REPORT INFORMATION
  Report Type: 
  Country: None (occurrence: None)
  Receive Date: 20110216
  Receipt Date: 20110211
  Transmission Date: 20110831
  Serious: Yes (Hospitalization, Other)
  Sender: FDA-Public Use
  Company Number: 2008-183474-NL

PATIENT
  Age: 29 Year
  Sex: Female
  Weight: 74.8 kg

DRUGS (13)
  1. PROMETHAZINE [Concomitant]
  2. CALCIUM [Concomitant]
  3. LORTAB [Concomitant]
  4. MEPERIDINE HCL [Concomitant]
  5. CLA [Concomitant]
  6. NUVARING [Suspect]
     Indication: PRODUCT USED FOR UNKNOWN INDICATION
     Dosage: 1 DF;QM;VAG
     Route: 067
     Dates: start: 20050429, end: 20080106
  7. ADIPEX-P [Suspect]
     Indication: WEIGHT DECREASED
  8. CEPHALEXIN [Concomitant]
  9. DIAZEPAM [Concomitant]
  10. MULTI-VITAMIN [Concomitant]
  11. ADVIL LIQUI-GELS [Concomitant]
  12. HYROXYCUT [Concomitant]
  13. HYDROCODONE BITARTRATE + ACETAMINOPHEN [Concomitant]

REACTIONS (16)
  - IRON DEFICIENCY ANAEMIA [None]
  - COAGULOPATHY [None]
  - MITRAL VALVE PROLAPSE [None]
  - PULMONARY EMBOLISM [None]
  - HYPERCOAGULATION [None]
  - LIPODYSTROPHY ACQUIRED [None]
  - LEUKOCYTOSIS [None]
  - PRODUCTIVE COUGH [None]
  - DEEP VEIN THROMBOSIS [None]
  - UPPER RESPIRATORY TRACT INFECTION [None]
  - BRONCHITIS [None]
  - HYPOTENSION [None]
  - THROMBOCYTOSIS [None]
  - BONE PAIN [None]
  - INCREASED TENDENCY TO BRUISE [None]
  - LIPOSUCTION [None]
